FAERS Safety Report 21745132 (Version 1)
Quarter: 2022Q4

REPORT INFORMATION
  Report Type: Spontaneous
  Country: US (occurrence: US)
  Receive Date: 20221219
  Receipt Date: 20221219
  Transmission Date: 20230113
  Serious: Yes (Other)
  Sender: FDA-Public Use
  Company Number: US-BRISTOL-MYERS SQUIBB COMPANY-2022-152911

PATIENT
  Age: 76 Year
  Sex: Female

DRUGS (6)
  1. REVLIMID [Suspect]
     Active Substance: LENALIDOMIDE
     Indication: Product used for unknown indication
     Dosage: DAILY QOD
     Route: 048
     Dates: start: 20221003
  2. DARZALEX [Concomitant]
     Active Substance: DARATUMUMAB
  3. ACYCLOVIR [Concomitant]
     Active Substance: ACYCLOVIR
  4. ASPIRIN [Concomitant]
     Active Substance: ASPIRIN
  5. LEVOTHYROXINE SODIUM [Concomitant]
     Active Substance: LEVOTHYROXINE SODIUM
  6. OXYCODONE [Concomitant]
     Active Substance: OXYCODONE

REACTIONS (1)
  - Confusional state [Unknown]

NARRATIVE: CASE EVENT DATE: 20221101
